FAERS Safety Report 20462932 (Version 3)
Quarter: 2022Q1

REPORT INFORMATION
  Report Type: Spontaneous
  Country: CN (occurrence: CN)
  Receive Date: 20220211
  Receipt Date: 20220218
  Transmission Date: 20220424
  Serious: Yes (Other)
  Sender: FDA-Public Use
  Company Number: CN-SEAGEN-2022SGN00874

PATIENT
  Age: 26 Year
  Sex: Female

DRUGS (2)
  1. ADCETRIS [Suspect]
     Active Substance: BRENTUXIMAB VEDOTIN
     Indication: Hodgkin^s disease
     Dosage: 100 MG
     Route: 065
     Dates: start: 202010
  2. TISLELIZUMAB [Suspect]
     Active Substance: TISLELIZUMAB
     Indication: Hodgkin^s disease
     Dosage: 200 MG
     Route: 065
     Dates: start: 202010

REACTIONS (2)
  - Tumour flare [Recovering/Resolving]
  - Off label use [Unknown]
